FAERS Safety Report 6542727-1 (Version None)
Quarter: 2010Q1

REPORT INFORMATION
  Report Type: 
  Country: None (occurrence: None)
  Receive Date: 20100114
  Receipt Date: 20091230
  Transmission Date: 20100710
  Serious: Yes (Hospitalization, Other)
  Sender: FDA-Public Use
  Company Number: 002691

PATIENT
  Sex: Female
  Weight: 54.4316 kg

DRUGS (7)
  1. ROTIGOTINE [Suspect]
     Indication: PARKINSON'S DISEASE
     Dosage: 2 MG QD TRANSDERMAL
     Route: 062
     Dates: start: 20090117
  2. NORVASC [Concomitant]
  3. ATACAND [Concomitant]
  4. CELEBREX [Concomitant]
  5. PLAQUENIL [Concomitant]
  6. PARSITAN [Concomitant]
  7. EXTRA STRENGTH TYLENOL PM [Concomitant]

REACTIONS (4)
  - ANAEMIA [None]
  - BLOOD PRESSURE DIASTOLIC DECREASED [None]
  - PYREXIA [None]
  - UROSEPSIS [None]
